FAERS Safety Report 7959078-0 (Version None)
Quarter: 2011Q4

REPORT INFORMATION
  Report Type: 
  Country: None (occurrence: None)
  Receive Date: 20111206
  Receipt Date: 20111206
  Transmission Date: 20120403
  Serious: Yes (Disabling)
  Sender: FDA-Public Use
  Company Number: None

PATIENT
  Age: 68 Year
  Sex: Female
  Weight: 53.07 kg

DRUGS (1)
  1. LIPITOR [Suspect]
     Dosage: ONE TABLET

REACTIONS (3)
  - MYALGIA [None]
  - BACK PAIN [None]
  - PAIN IN EXTREMITY [None]
